FAERS Safety Report 14264618 (Version 1)
Quarter: 2017Q4

REPORT INFORMATION
  Report Type: Spontaneous
  Country: US (occurrence: US)
  Receive Date: 20171208
  Receipt Date: 20171208
  Transmission Date: 20180321
  Serious: Yes (Other)
  Sender: FDA-Public Use
  Company Number: US-JAZZ-2017-US-014904

PATIENT
  Age: 31 Year
  Sex: Male

DRUGS (2)
  1. XYREM [Suspect]
     Active Substance: SODIUM OXYBATE
     Dosage: PARENTERAL
     Route: 051
  2. XYREM [Suspect]
     Active Substance: SODIUM OXYBATE
     Indication: INTENTIONAL PRODUCT MISUSE
     Dosage: INGESTION
     Route: 048

REACTIONS (3)
  - Drug abuse [Unknown]
  - Cyanosis [Recovered/Resolved]
  - Respiratory depression [Recovered/Resolved]

NARRATIVE: CASE EVENT DATE: 20160113
